FAERS Safety Report 6508154-8 (Version None)
Quarter: 2009Q4

REPORT INFORMATION
  Report Type: 
  Country: None (occurrence: None)
  Receive Date: 20091221
  Receipt Date: 20081208
  Transmission Date: 20100525
  Serious: No
  Sender: FDA-Public Use
  Company Number: US-ASTRAZENECA-2008UW27220

PATIENT
  Age: 75 Year
  Sex: Male

DRUGS (9)
  1. CRESTOR [Suspect]
     Route: 048
     Dates: start: 20081101
  2. SIMVASTATIN [Concomitant]
     Dates: end: 20080101
  3. FLOMAX [Concomitant]
  4. AMLODIPINE [Concomitant]
  5. FOSINOPRIL SODIUM [Concomitant]
  6. CALCIUM [Concomitant]
  7. GLUCOSAMINE [Concomitant]
  8. ASCORBIC ACID [Concomitant]
  9. IBUPROFEN [Concomitant]

REACTIONS (1)
  - HYPOAESTHESIA [None]
